FAERS Safety Report 13887474 (Version 1)
Quarter: 2017Q3

REPORT INFORMATION
  Report Type: Spontaneous
  Country: US (occurrence: US)
  Receive Date: 20170821
  Receipt Date: 20170821
  Transmission Date: 20171127
  Serious: No
  Sender: FDA-Public Use
  Company Number: US-ROCHE-772922

PATIENT
  Age: 38 Year
  Sex: Female
  Weight: 70.3 kg

DRUGS (87)
  1. ALEVE [Concomitant]
     Active Substance: NAPROXEN SODIUM
     Route: 065
  2. BENADRYL [Concomitant]
     Active Substance: DIPHENHYDRAMINE HYDROCHLORIDE
     Route: 065
  3. FLOVENT [Concomitant]
     Active Substance: FLUTICASONE PROPIONATE
     Route: 065
  4. ALBUTEROL. [Concomitant]
     Active Substance: ALBUTEROL
     Route: 065
  5. ALBUTEROL. [Concomitant]
     Active Substance: ALBUTEROL
     Route: 065
  6. ALBUTEROL. [Concomitant]
     Active Substance: ALBUTEROL
     Route: 065
  7. METHOTREXATE. [Concomitant]
     Active Substance: METHOTREXATE
     Route: 065
  8. METHOTREXATE. [Concomitant]
     Active Substance: METHOTREXATE
     Route: 065
  9. METHOTREXATE. [Concomitant]
     Active Substance: METHOTREXATE
     Dosage: 2/WEEK
     Route: 065
  10. FLONASE [Concomitant]
     Active Substance: FLUTICASONE PROPIONATE
     Route: 065
  11. NEURONTIN [Concomitant]
     Active Substance: GABAPENTIN
     Route: 065
  12. BENADRYL [Concomitant]
     Active Substance: DIPHENHYDRAMINE HYDROCHLORIDE
     Route: 065
  13. FLOVENT [Concomitant]
     Active Substance: FLUTICASONE PROPIONATE
     Route: 065
  14. FLOVENT [Concomitant]
     Active Substance: FLUTICASONE PROPIONATE
     Route: 065
  15. ALBUTEROL. [Concomitant]
     Active Substance: ALBUTEROL
     Route: 065
  16. ALBUTEROL. [Concomitant]
     Active Substance: ALBUTEROL
     Route: 065
  17. METHOTREXATE. [Concomitant]
     Active Substance: METHOTREXATE
     Route: 065
  18. FOLIC ACID. [Concomitant]
     Active Substance: FOLIC ACID
     Route: 065
  19. FLONASE [Concomitant]
     Active Substance: FLUTICASONE PROPIONATE
     Route: 065
  20. CITRACAL + D [Concomitant]
     Active Substance: CALCIUM CITRATE\VITAMIN D
     Route: 065
  21. OMEPRAZOLE. [Concomitant]
     Active Substance: OMEPRAZOLE
     Route: 065
  22. ACTEMRA [Suspect]
     Active Substance: TOCILIZUMAB
     Route: 042
     Dates: start: 20101130, end: 20101130
  23. ACTEMRA [Suspect]
     Active Substance: TOCILIZUMAB
     Route: 042
     Dates: start: 20110103, end: 20110103
  24. TYLENOL [Concomitant]
     Active Substance: ACETAMINOPHEN
     Route: 065
  25. ALEVE [Concomitant]
     Active Substance: NAPROXEN SODIUM
     Route: 065
  26. BENADRYL [Concomitant]
     Active Substance: DIPHENHYDRAMINE HYDROCHLORIDE
     Route: 065
  27. ALBUTEROL. [Concomitant]
     Active Substance: ALBUTEROL
     Route: 065
  28. CLARITIN [Concomitant]
     Active Substance: LORATADINE
     Route: 065
  29. CLARITIN [Concomitant]
     Active Substance: LORATADINE
     Route: 065
  30. CLARITIN [Concomitant]
     Active Substance: LORATADINE
     Route: 065
  31. METHOTREXATE. [Concomitant]
     Active Substance: METHOTREXATE
     Route: 065
  32. FOLIC ACID. [Concomitant]
     Active Substance: FOLIC ACID
     Route: 065
  33. FOLIC ACID. [Concomitant]
     Active Substance: FOLIC ACID
     Route: 065
  34. FOLIC ACID. [Concomitant]
     Active Substance: FOLIC ACID
     Route: 065
  35. FLONASE [Concomitant]
     Active Substance: FLUTICASONE PROPIONATE
     Route: 065
  36. CITRACAL + D [Concomitant]
     Active Substance: CALCIUM CITRATE\VITAMIN D
     Route: 065
  37. CITRACAL + D [Concomitant]
     Active Substance: CALCIUM CITRATE\VITAMIN D
     Route: 065
  38. ACYCLOVIR. [Concomitant]
     Active Substance: ACYCLOVIR
     Route: 065
  39. ACTEMRA [Suspect]
     Active Substance: TOCILIZUMAB
     Route: 042
     Dates: start: 20100519, end: 20100519
  40. TYLENOL [Concomitant]
     Active Substance: ACETAMINOPHEN
     Route: 065
  41. TYLENOL [Concomitant]
     Active Substance: ACETAMINOPHEN
     Route: 065
  42. ALEVE [Concomitant]
     Active Substance: NAPROXEN SODIUM
     Route: 065
  43. ALEVE [Concomitant]
     Active Substance: NAPROXEN SODIUM
     Route: 065
  44. FLOVENT [Concomitant]
     Active Substance: FLUTICASONE PROPIONATE
     Route: 065
  45. FLOVENT [Concomitant]
     Active Substance: FLUTICASONE PROPIONATE
     Route: 065
  46. FLONASE [Concomitant]
     Active Substance: FLUTICASONE PROPIONATE
     Route: 065
  47. ACTEMRA [Suspect]
     Active Substance: TOCILIZUMAB
     Route: 042
     Dates: start: 20101013, end: 20101013
  48. TYLENOL [Concomitant]
     Active Substance: ACETAMINOPHEN
     Route: 065
  49. ALEVE [Concomitant]
     Active Substance: NAPROXEN SODIUM
     Route: 065
  50. FLOVENT [Concomitant]
     Active Substance: FLUTICASONE PROPIONATE
     Route: 065
  51. FOLIC ACID. [Concomitant]
     Active Substance: FOLIC ACID
     Route: 065
  52. FLONASE [Concomitant]
     Active Substance: FLUTICASONE PROPIONATE
     Route: 065
  53. CITRACAL + D [Concomitant]
     Active Substance: CALCIUM CITRATE\VITAMIN D
     Route: 065
  54. ACTEMRA [Suspect]
     Active Substance: TOCILIZUMAB
     Indication: RHEUMATOID ARTHRITIS
     Dosage: DOSE  NOT MENTIONED?FORM: INFUSION
     Route: 042
     Dates: start: 20100420, end: 20100420
  55. ACTEMRA [Suspect]
     Active Substance: TOCILIZUMAB
     Route: 042
     Dates: start: 20110302, end: 20110302
  56. ACTEMRA [Suspect]
     Active Substance: TOCILIZUMAB
     Route: 042
     Dates: start: 20110413, end: 20110413
  57. TYLENOL [Concomitant]
     Active Substance: ACETAMINOPHEN
     Route: 065
  58. FLOVENT [Concomitant]
     Active Substance: FLUTICASONE PROPIONATE
     Route: 065
  59. ALBUTEROL. [Concomitant]
     Active Substance: ALBUTEROL
     Dosage: PRN
     Route: 065
  60. CLARITIN [Concomitant]
     Active Substance: LORATADINE
     Route: 065
  61. CLARITIN [Concomitant]
     Active Substance: LORATADINE
     Route: 065
  62. FLONASE [Concomitant]
     Active Substance: FLUTICASONE PROPIONATE
     Route: 065
  63. MECHOL [Concomitant]
     Route: 065
  64. ACTEMRA [Suspect]
     Active Substance: TOCILIZUMAB
     Route: 042
     Dates: start: 20100821, end: 20100821
  65. TYLENOL [Concomitant]
     Active Substance: ACETAMINOPHEN
     Route: 065
  66. ALEVE [Concomitant]
     Active Substance: NAPROXEN SODIUM
     Route: 065
  67. BENADRYL [Concomitant]
     Active Substance: DIPHENHYDRAMINE HYDROCHLORIDE
     Route: 065
  68. ALBUTEROL. [Concomitant]
     Active Substance: ALBUTEROL
     Route: 065
  69. CLARITIN [Concomitant]
     Active Substance: LORATADINE
     Route: 065
  70. METHOTREXATE. [Concomitant]
     Active Substance: METHOTREXATE
     Route: 065
  71. PREDNISONE. [Concomitant]
     Active Substance: PREDNISONE
     Route: 065
  72. CITRACAL + D [Concomitant]
     Active Substance: CALCIUM CITRATE\VITAMIN D
     Dosage: TOD
     Route: 065
  73. TYLENOL [Concomitant]
     Active Substance: ACETAMINOPHEN
     Route: 065
  74. ALEVE [Concomitant]
     Active Substance: NAPROXEN SODIUM
     Route: 065
  75. BENADRYL [Concomitant]
     Active Substance: DIPHENHYDRAMINE HYDROCHLORIDE
     Route: 065
  76. BENADRYL [Concomitant]
     Active Substance: DIPHENHYDRAMINE HYDROCHLORIDE
     Route: 065
  77. FLOVENT [Concomitant]
     Active Substance: FLUTICASONE PROPIONATE
     Route: 065
  78. CLARITIN [Concomitant]
     Active Substance: LORATADINE
     Route: 065
  79. CLARITIN [Concomitant]
     Active Substance: LORATADINE
     Route: 065
  80. METHOTREXATE. [Concomitant]
     Active Substance: METHOTREXATE
     Route: 065
  81. METHOTREXATE. [Concomitant]
     Active Substance: METHOTREXATE
     Route: 065
  82. FOLIC ACID. [Concomitant]
     Active Substance: FOLIC ACID
     Route: 065
  83. FOLIC ACID. [Concomitant]
     Active Substance: FOLIC ACID
     Route: 065
  84. FOLIC ACID. [Concomitant]
     Active Substance: FOLIC ACID
     Route: 065
  85. FLONASE [Concomitant]
     Active Substance: FLUTICASONE PROPIONATE
     Dosage: AD
     Route: 065
  86. CITRACAL + D [Concomitant]
     Active Substance: CALCIUM CITRATE\VITAMIN D
     Route: 065
  87. CITRACAL + D [Concomitant]
     Active Substance: CALCIUM CITRATE\VITAMIN D
     Route: 065

REACTIONS (1)
  - Ophthalmic herpes zoster [Recovering/Resolving]

NARRATIVE: CASE EVENT DATE: 20110306
